FAERS Safety Report 6584859-8 (Version None)
Quarter: 2010Q1

REPORT INFORMATION
  Report Type: 
  Country: None (occurrence: None)
  Receive Date: 20100217
  Receipt Date: 20100203
  Transmission Date: 20100710
  Serious: Yes (Disabling, Other)
  Sender: FDA-Public Use
  Company Number: PHEH2008US02465

PATIENT
  Sex: Female

DRUGS (26)
  1. ZELNORM [Suspect]
     Indication: IRRITABLE BOWEL SYNDROME
     Dosage: 6 MG, BID
     Route: 048
     Dates: start: 20040101, end: 20060301
  2. ACCOLATE [Concomitant]
  3. ZYRTEC [Concomitant]
  4. NEXIUM [Concomitant]
  5. ZOLOFT [Concomitant]
  6. LISINOPRIL [Concomitant]
  7. PLAVIX [Concomitant]
  8. TOPROL-XL [Concomitant]
  9. EFFEXOR XR [Concomitant]
  10. ASPIRIN [Concomitant]
  11. COENZYME A [Concomitant]
  12. ESTRATEST [Concomitant]
  13. AMBIEN [Concomitant]
  14. RESTASIS [Concomitant]
  15. XALATAN [Concomitant]
  16. TEMAZEPAM [Concomitant]
  17. CYMBALTA [Concomitant]
  18. PROTONIX [Concomitant]
  19. MAALOX                                  /NET/ [Concomitant]
  20. ECOTRIN [Concomitant]
  21. ADVICOR [Concomitant]
  22. BENTYL [Concomitant]
  23. NITROGLYCERIN [Concomitant]
  24. CARDIZEM [Concomitant]
  25. VALTREX [Concomitant]
  26. LOVAZA [Concomitant]

REACTIONS (19)
  - ANXIETY [None]
  - ARTERIOSCLEROSIS CORONARY ARTERY [None]
  - BENIGN BREAST NEOPLASM [None]
  - CHEST PAIN [None]
  - CLAVICLE FRACTURE [None]
  - CONTUSION [None]
  - DEPRESSION [None]
  - DIVERTICULUM [None]
  - HEADACHE [None]
  - HYPOAESTHESIA [None]
  - MYOCARDIAL INFARCTION [None]
  - NECK PAIN [None]
  - OSTEOARTHRITIS [None]
  - PAIN [None]
  - PARAESTHESIA [None]
  - PHYSICAL DISABILITY [None]
  - POST-TRAUMATIC STRESS DISORDER [None]
  - RENAL CYST [None]
  - STENT PLACEMENT [None]
